FAERS Safety Report 18411120 (Version 1)
Quarter: 2020Q4

REPORT INFORMATION
  Report Type: Spontaneous
  Country: JP (occurrence: JP)
  Receive Date: 20201021
  Receipt Date: 20201021
  Transmission Date: 20210114
  Serious: Yes (Hospitalization, Other)
  Sender: FDA-Public Use
  Company Number: JP-PFIZER INC-2020405678

PATIENT
  Age: 85 Year
  Sex: Male

DRUGS (2)
  1. ETIZOLAM [Suspect]
     Active Substance: ETIZOLAM
     Indication: SLEEP DISORDER
     Dosage: 1.0 MG
  2. LYRICA [Suspect]
     Active Substance: PREGABALIN
     Dosage: 100 MG, DAILY
     Route: 048

REACTIONS (4)
  - Hypoventilation [Unknown]
  - Altered state of consciousness [Unknown]
  - Respiratory failure [Unknown]
  - Hypercapnia [Unknown]
